FAERS Safety Report 9343715 (Version 2)
Quarter: 2013Q2

REPORT INFORMATION
  Report Type: Report from Study
  Country: US (occurrence: US)
  Receive Date: 20130612
  Receipt Date: 20130617
  Transmission Date: 20140414
  Serious: Yes (Other)
  Sender: FDA-Public Use
  Company Number: US-ROCHE-1233836

PATIENT
  Age: 41 Year
  Sex: Female
  Weight: 46.9 kg

DRUGS (5)
  1. ZELBORAF [Suspect]
     Indication: METASTATIC MALIGNANT MELANOMA
     Route: 048
     Dates: start: 20130515, end: 20130605
  2. ZELBORAF [Suspect]
     Route: 048
     Dates: start: 20130530, end: 20130605
  3. XANAX [Concomitant]
     Indication: ANXIETY
     Route: 048
  4. LUNESTA [Concomitant]
     Indication: SLEEP DISORDER
     Route: 048
  5. ZYRTEC [Concomitant]
     Indication: HYPERSENSITIVITY
     Route: 048

REACTIONS (3)
  - Swollen tongue [Recovered/Resolved]
  - Rash generalised [Recovering/Resolving]
  - Eyelid oedema [Recovering/Resolving]
